FAERS Safety Report 11772263 (Version 1)
Quarter: 2015Q4

REPORT INFORMATION
  Report Type: Spontaneous
  Country: None (occurrence: US)
  Receive Date: 20151124
  Receipt Date: 20151124
  Transmission Date: 20160304
  Serious: No
  Sender: FDA-Public Use
  Company Number: US-TEVA-576195USA

PATIENT
  Sex: Male

DRUGS (1)
  1. AZITHROMYCIN [Suspect]
     Active Substance: AZITHROMYCIN ANHYDROUS
     Indication: ANTIBIOTIC THERAPY
     Dosage: 250 MILLIGRAM DAILY;
     Route: 065
     Dates: start: 201506

REACTIONS (6)
  - Product substitution issue [Unknown]
  - Ageusia [Unknown]
  - Anosmia [Unknown]
  - Dysgeusia [Recovered/Resolved]
  - Product formulation issue [Unknown]
  - Parosmia [Unknown]
